FAERS Safety Report 12908576 (Version 2)
Quarter: 2017Q1

REPORT INFORMATION
  Report Type: Spontaneous
  Country: US (occurrence: US)
  Receive Date: 20161103
  Receipt Date: 20170202
  Transmission Date: 20170428
  Serious: No
  Sender: FDA-Public Use
  Company Number: US-IMPAX LABORATORIES, INC-2016-IPXL-00841

PATIENT
  Sex: Male
  Weight: 60 kg

DRUGS (7)
  1. LAMICTAL [Suspect]
     Active Substance: LAMOTRIGINE
     Dosage: 100 MG; UNK
     Route: 065
  2. FLUCONAZOLE. [Concomitant]
     Active Substance: FLUCONAZOLE
     Indication: LOCALISED INFECTION
     Dosage: UNK
     Route: 065
  3. LAMICTAL [Suspect]
     Active Substance: LAMOTRIGINE
     Indication: PRODUCT USED FOR UNKNOWN INDICATION
     Dosage: 200 MG; UNK
     Route: 065
  4. WELLBUTRIN [Concomitant]
     Active Substance: BUPROPION HYDROCHLORIDE
     Indication: DEPRESSION
     Dosage: UNK
     Route: 065
  5. RYTARY [Suspect]
     Active Substance: CARBIDOPA\LEVODOPA
     Indication: PARKINSON^S DISEASE
     Dosage: THREE CAPSULES THREE TIMES A DAY
     Route: 048
  6. RYTARY [Suspect]
     Active Substance: CARBIDOPA\LEVODOPA
     Dosage: TWO CAPSULES THREE TIMES A DAY
     Route: 048
     Dates: start: 2016, end: 201612
  7. AZILECT [Suspect]
     Active Substance: RASAGILINE MESYLATE
     Indication: PARKINSON^S DISEASE
     Dosage: 1 MG, 1 /DAY
     Route: 065

REACTIONS (23)
  - Tongue movement disturbance [Recovering/Resolving]
  - Anxiety [Unknown]
  - Dizziness [Unknown]
  - Tremor [Unknown]
  - Body temperature increased [Unknown]
  - Paraesthesia oral [Recovering/Resolving]
  - Lethargy [Recovering/Resolving]
  - Hypokinesia [Recovering/Resolving]
  - Nausea [Recovering/Resolving]
  - Nervousness [Recovering/Resolving]
  - Abnormal dreams [Unknown]
  - Dyskinesia [Unknown]
  - Drug administration error [Unknown]
  - Altered state of consciousness [Unknown]
  - Autonomic nervous system imbalance [Unknown]
  - Constipation [Unknown]
  - Apathy [Recovering/Resolving]
  - Agitation [Unknown]
  - Headache [Unknown]
  - Muscle rigidity [Unknown]
  - Feeling abnormal [Unknown]
  - Depression [Recovering/Resolving]
  - Insomnia [Unknown]

NARRATIVE: CASE EVENT DATE: 2015
